FAERS Safety Report 9876884 (Version 2)
Quarter: 2014Q1

REPORT INFORMATION
  Report Type: Spontaneous
  Country: US (occurrence: US)
  Receive Date: 20140206
  Receipt Date: 20140206
  Transmission Date: 20141002
  Serious: No
  Sender: FDA-Public Use
  Company Number: US-ACORDA-ACO_36649_2013

PATIENT
  Age: 74 Year
  Sex: Male
  Weight: 83.9 kg

DRUGS (3)
  1. AMPYRA [Suspect]
     Indication: PRODUCT USED FOR UNKNOWN INDICATION
     Dosage: 10 MG, BID
     Route: 048
     Dates: start: 20121102, end: 20130626
  2. AMPYRA [Suspect]
     Dosage: UNK
     Route: 065
     Dates: start: 2013
  3. AVONEX [Suspect]
     Indication: MULTIPLE SCLEROSIS
     Dosage: 30 MG, WEEKLY
     Route: 030
     Dates: start: 201302, end: 201305

REACTIONS (5)
  - Muscular weakness [Unknown]
  - Influenza like illness [Unknown]
  - Multiple sclerosis [Unknown]
  - Paraesthesia [Unknown]
  - Asthenia [Unknown]
